FAERS Safety Report 4763796-5 (Version None)
Quarter: 2005Q3

REPORT INFORMATION
  Report Type: 
  Country: None (occurrence: None)
  Receive Date: 20050901
  Receipt Date: 20050719
  Transmission Date: 20060218
  Serious: No
  Sender: FDA-Public Use
  Company Number: 05P-163-0306139-00

PATIENT
  Age: 50 Year
  Sex: Female

DRUGS (2)
  1. DEPAKOTE ER [Suspect]
     Indication: CONVULSION
     Dosage: 500 MG, 2 IN 1 D, PER ORAL
     Route: 048
     Dates: start: 20021001, end: 20050630
  2. ATENOLOL [Concomitant]

REACTIONS (4)
  - FATIGUE [None]
  - HEPATOTOXICITY [None]
  - NAUSEA [None]
  - OCULAR ICTERUS [None]
